FAERS Safety Report 8817760 (Version 1)
Quarter: 2012Q4

REPORT INFORMATION
  Report Type: 
  Country: BR (occurrence: BR)
  Receive Date: 20121001
  Receipt Date: 20121001
  Transmission Date: 20130627
  Serious: Yes (Other)
  Sender: FDA-Public Use
  Company Number: BR-PFIZER INC-2012240421

PATIENT
  Age: 39 Year
  Sex: Male
  Weight: 82 kg

DRUGS (2)
  1. FRONTAL XR [Suspect]
     Indication: PANIC DISORDER
     Dosage: one tablet of 1mg and one tablet of 2mg, every 12 hours
     Route: 048
     Dates: start: 201201
  2. RIVOTRIL [Concomitant]
     Indication: SLEEP DISORDER
     Dosage: one tablet once daily
     Dates: start: 201201

REACTIONS (2)
  - Bipolar disorder [Unknown]
  - Drug ineffective [Unknown]
